FAERS Safety Report 7913577-6 (Version None)
Quarter: 2011Q4

REPORT INFORMATION
  Report Type: 
  Country: None (occurrence: None)
  Receive Date: 20111115
  Receipt Date: 20111110
  Transmission Date: 20120403
  Serious: No
  Sender: FDA-Public Use
  Company Number: US-PFIZER INC-2011276211

PATIENT
  Sex: Female
  Weight: 76.19 kg

DRUGS (1)
  1. IBUPROFEN (ADVIL) [Suspect]
     Indication: ABDOMINAL PAIN UPPER
     Dosage: UNK, 2X/DAY
     Route: 048
     Dates: start: 20111108, end: 20111109

REACTIONS (1)
  - BLOOD PRESSURE FLUCTUATION [None]
